FAERS Safety Report 5943603-5 (Version None)
Quarter: 2008Q4

REPORT INFORMATION
  Report Type: 
  Country: None (occurrence: None)
  Receive Date: 20081106
  Receipt Date: 20081106
  Transmission Date: 20090506
  Serious: Yes (Hospitalization)
  Sender: FDA-Public Use
  Company Number: US-PURDUE-USA_2008_0035621

PATIENT
  Age: 27 Year
  Sex: Male
  Weight: 74 kg

DRUGS (9)
  1. TEMOZOLOMIDE [Suspect]
     Indication: CENTRAL NERVOUS SYSTEM LYMPHOMA
     Dosage: 100 MG/M2, DAILY
     Route: 048
     Dates: start: 20080605, end: 20080605
  2. TEMOZOLOMIDE [Suspect]
     Dosage: 100 MG/M2, DAILY
     Route: 048
     Dates: start: 20080611, end: 20080614
  3. METHOTREXATE [Suspect]
     Indication: CENTRAL NERVOUS SYSTEM LYMPHOMA
     Dosage: UNK, WEEKLY
     Dates: start: 20080528, end: 20080528
  4. RITUXIMAB [Suspect]
     Indication: CENTRAL NERVOUS SYSTEM LYMPHOMA
     Dosage: 375 MG/M2, UNK
     Dates: start: 20080507, end: 20080507
  5. VANCOMYCIN [Suspect]
     Indication: INFECTION
  6. PHENERGAN HCL [Suspect]
     Indication: NAUSEA
  7. XANAX [Suspect]
     Indication: DRUG USE FOR UNKNOWN INDICATION
  8. INSULIN [Suspect]
     Indication: DRUG USE FOR UNKNOWN INDICATION
  9. DILAUDID [Suspect]
     Indication: DRUG USE FOR UNKNOWN INDICATION

REACTIONS (4)
  - DYSPNOEA [None]
  - HEADACHE [None]
  - NAUSEA [None]
  - PYREXIA [None]
